FAERS Safety Report 22161879 (Version 1)
Quarter: 2023Q1

REPORT INFORMATION
  Report Type: Report from Study
  Country: GB (occurrence: GB)
  Receive Date: 20230331
  Receipt Date: 20230331
  Transmission Date: 20230417
  Serious: Yes (Other)
  Sender: FDA-Public Use
  Company Number: GB-002147023-NVSC2023GB041588

PATIENT
  Sex: Male

DRUGS (1)
  1. COSENTYX [Suspect]
     Active Substance: SECUKINUMAB
     Indication: Psoriatic arthropathy
     Dosage: UNK
     Route: 065

REACTIONS (12)
  - Suicidal ideation [Recovered/Resolved]
  - Psoriasis [Recovering/Resolving]
  - Rash [Recovering/Resolving]
  - Burning sensation [Recovering/Resolving]
  - Peripheral swelling [Not Recovered/Not Resolved]
  - Rash pruritic [Recovering/Resolving]
  - Rash erythematous [Recovering/Resolving]
  - Skin fissures [Unknown]
  - Skin mass [Recovering/Resolving]
  - Dry skin [Unknown]
  - Nail disorder [Recovering/Resolving]
  - Tinea pedis [Unknown]

NARRATIVE: CASE EVENT DATE: 20230218
